FAERS Safety Report 11986859 (Version 1)
Quarter: 2016Q1

REPORT INFORMATION
  Report Type: Spontaneous
  Country: US (occurrence: None)
  Receive Date: 20160201
  Receipt Date: 20160201
  Transmission Date: 20160526
  Serious: Yes (Hospitalization)
  Sender: FDA-Public Use
  Company Number: None

PATIENT
  Age: 75 Year
  Sex: Female
  Weight: 60.1 kg

DRUGS (20)
  1. PREDNISONE 10MG [Suspect]
     Active Substance: PREDNISONE
     Dosage: 10-40 MG TAPER QD ORAL
     Route: 048
  2. MIRALAX [Concomitant]
     Active Substance: POLYETHYLENE GLYCOL 3350
  3. SIMVASTATIN (ZOCOR) [Concomitant]
  4. DICLOFENAC [Concomitant]
     Active Substance: DICLOFENAC
  5. EPINEPHRINE (EPIPEN) [Concomitant]
  6. LIDOCAINE. [Concomitant]
     Active Substance: LIDOCAINE
  7. MILNACIPRAN (SAVELLA) [Concomitant]
  8. MULTIPLE VITAMINS-MINERALS (CENTRUM SILVER) [Concomitant]
  9. NAPROXEN 250 MG [Suspect]
     Active Substance: NAPROXEN
     Indication: PAIN
     Route: 048
  10. FOLIC ACID (FOLATE) [Concomitant]
  11. METOPROLOL (LOPRESSOR) [Concomitant]
  12. MEMANTINE HCL ER (NAMENDA XR) [Concomitant]
  13. DICLOFENAC (VOLTAREN) 1 % GEL [Concomitant]
  14. TRIAMCINOLONE (KENALOG) [Concomitant]
  15. CHOLECALCIFEROL [Concomitant]
     Active Substance: CHOLECALCIFEROL
  16. CALCIUM CARBONATE. [Concomitant]
     Active Substance: CALCIUM CARBONATE
  17. GABAPENTIN 6% CREAM [Concomitant]
  18. DONEPEZIL (ARICEPT) [Concomitant]
  19. TYLENOL [Concomitant]
     Active Substance: ACETAMINOPHEN
  20. VITAMIN D [Concomitant]
     Active Substance: CHOLECALCIFEROL

REACTIONS (7)
  - Loss of consciousness [None]
  - Upper gastrointestinal haemorrhage [None]
  - Haemoglobin decreased [None]
  - Faeces discoloured [None]
  - Gastric dilatation [None]
  - Gastric disorder [None]
  - Syncope [None]

NARRATIVE: CASE EVENT DATE: 20151225
